FAERS Safety Report 14739408 (Version 2)
Quarter: 2018Q2

REPORT INFORMATION
  Report Type: Report from Study
  Country: None (occurrence: DE)
  Receive Date: 20180410
  Receipt Date: 20180412
  Transmission Date: 20180711
  Serious: Yes (Hospitalization, Other)
  Sender: FDA-Public Use
  Company Number: DE-ABBVIE-18K-062-2315323-00

PATIENT
  Age: 47 Year
  Sex: Female

DRUGS (4)
  1. METHOTREXATE. [Suspect]
     Active Substance: METHOTREXATE
     Indication: RHEUMATOID ARTHRITIS
     Dosage: ALSO TAKEN ON T5: 10 MAR 2010, T6: 27 SEP 2010; AND T7: 16 FEB 2011; T10: 17 SEP 2012
     Route: 065
     Dates: start: 20080304
  2. HUMIRA [Suspect]
     Active Substance: ADALIMUMAB
     Indication: RHEUMATOID ARTHRITIS
     Route: 058
  3. ABATACEPT [Suspect]
     Active Substance: ABATACEPT
     Indication: RHEUMATOID ARTHRITIS
     Dosage: 750 MG, UNK
     Route: 065
     Dates: start: 201004
  4. SULFASALAZINE. [Suspect]
     Active Substance: SULFASALAZINE
     Indication: RHEUMATOID ARTHRITIS
     Dosage: 2000 MG, UNK
     Route: 065
     Dates: start: 20080606

REACTIONS (6)
  - Cardiomyopathy [Unknown]
  - Spinal operation [Unknown]
  - Fall [Unknown]
  - Humerus fracture [Unknown]
  - Contraindicated product administered [Unknown]
  - Cervicobrachial syndrome [Unknown]

NARRATIVE: CASE EVENT DATE: 20100928
